FAERS Safety Report 25269826 (Version 1)
Quarter: 2025Q2

REPORT INFORMATION
  Report Type: Report from Study
  Country: CO (occurrence: CO)
  Receive Date: 20250505
  Receipt Date: 20250505
  Transmission Date: 20250716
  Serious: Yes (Hospitalization)
  Sender: ABBVIE
  Company Number: CO-ABBVIE-6259964

PATIENT
  Age: 21 Year
  Sex: Male
  Weight: 55 kg

DRUGS (1)
  1. RINVOQ [Suspect]
     Active Substance: UPADACITINIB
     Indication: Dermatitis atopic
     Dosage: RINVOQ BOTTLE 15MG
     Route: 048
     Dates: start: 20240510, end: 20250408

REACTIONS (4)
  - Cutaneous lymphoma [Unknown]
  - Dermatitis atopic [Recovering/Resolving]
  - Purulent discharge [Unknown]
  - Wound haemorrhage [Unknown]

NARRATIVE: CASE EVENT DATE: 20250401
